FAERS Safety Report 10241773 (Version 2)
Quarter: 2014Q4

REPORT INFORMATION
  Report Type: Spontaneous
  Country: US (occurrence: None)
  Receive Date: 20140612
  Receipt Date: 20141219
  Transmission Date: 20150528
  Serious: Yes (Other)
  Sender: FDA-Public Use
  Company Number: 2014-US-006691

PATIENT
  Age: 46 Year
  Sex: Female

DRUGS (1)
  1. XYREM [Suspect]
     Active Substance: SODIUM OXYBATE
     Indication: INSOMNIA
     Route: 048
     Dates: start: 201402, end: 2014

REACTIONS (5)
  - Nasopharyngitis [None]
  - Cough [None]
  - Hypersensitivity [None]
  - Off label use [None]
  - Surgery [None]

NARRATIVE: CASE EVENT DATE: 201405
